FAERS Safety Report 12124435 (Version 2)
Quarter: 2016Q2

REPORT INFORMATION
  Report Type: Spontaneous
  Country: US (occurrence: US)
  Receive Date: 20160229
  Receipt Date: 20160412
  Transmission Date: 20160815
  Serious: Yes (Death, Other)
  Sender: FDA-Public Use
  Company Number: US-ABBVIE-16K-163-1569993-00

PATIENT
  Sex: Male
  Weight: 83.76 kg

DRUGS (2)
  1. HUMIRA [Suspect]
     Active Substance: ADALIMUMAB
     Indication: PSORIASIS
     Route: 058
     Dates: end: 2012
  2. HUMIRA [Suspect]
     Active Substance: ADALIMUMAB
     Indication: PSORIATIC ARTHROPATHY
     Route: 058
     Dates: start: 2012

REACTIONS (17)
  - Respiratory failure [Fatal]
  - Paraesthesia [Unknown]
  - Memory impairment [Unknown]
  - Decreased appetite [Unknown]
  - Immunosuppression [Unknown]
  - Hypoaesthesia [Unknown]
  - Coagulopathy [Unknown]
  - Gastrointestinal haemorrhage [Fatal]
  - Hypotension [Unknown]
  - Dyspnoea exertional [Unknown]
  - Hepatotoxicity [Unknown]
  - Asthenia [Unknown]
  - Cirrhosis alcoholic [Fatal]
  - Cerebrovascular accident [Unknown]
  - Diabetes mellitus [Unknown]
  - Fatigue [Unknown]
  - Blood count abnormal [Unknown]
